FAERS Safety Report 6590281-0 (Version None)
Quarter: 2010Q1

REPORT INFORMATION
  Report Type: 
  Country: None (occurrence: None)
  Receive Date: 20100219
  Receipt Date: 20100212
  Transmission Date: 20100710
  Serious: Yes (Hospitalization)
  Sender: FDA-Public Use
  Company Number: US-ASTRAZENECA-2010SE06331

PATIENT
  Age: 84 Year
  Sex: Female
  Weight: 70.3 kg

DRUGS (2)
  1. TOPROL-XL [Suspect]
     Route: 048
  2. METOPROLOL TARTRATE [Suspect]
     Route: 065

REACTIONS (2)
  - ABDOMINAL DISCOMFORT [None]
  - GALLBLADDER DISORDER [None]
